FAERS Safety Report 5051328-6 (Version None)
Quarter: 2006Q3

REPORT INFORMATION
  Report Type: 
  Country: None (occurrence: None)
  Receive Date: 20060714
  Receipt Date: 20060712
  Transmission Date: 20061208
  Serious: Yes (Death)
  Sender: FDA-Public Use
  Company Number: ZA-BRISTOL-MYERS SQUIBB COMPANY-13439351

PATIENT
  Age: 40 Year
  Sex: Male

DRUGS (4)
  1. DASATINIB [Suspect]
     Indication: LEUKAEMIA
     Route: 048
     Dates: start: 20060315, end: 20060710
  2. AMOXICILLIN [Concomitant]
     Dates: start: 20060705, end: 20060701
  3. PHARMATON [Concomitant]
     Dates: start: 20060530, end: 20060701
  4. PARACETAMOL [Concomitant]
     Dates: start: 20060401, end: 20060701

REACTIONS (1)
  - GASTROENTERITIS [None]
